FAERS Safety Report 11376483 (Version 1)
Quarter: 2015Q3

REPORT INFORMATION
  Report Type: Spontaneous
  Country: CN (occurrence: CN)
  Receive Date: 20150813
  Receipt Date: 20150813
  Transmission Date: 20151125
  Serious: Yes (Other)
  Sender: FDA-Public Use
  Company Number: CN-GLAXOSMITHKLINE-CN2015GSK114515

PATIENT

DRUGS (1)
  1. BACTROBAN [Suspect]
     Active Substance: MUPIROCIN\MUPIROCIN CALCIUM
     Indication: ECZEMA
     Dosage: UNK
     Route: 061

REACTIONS (5)
  - Erythema [Unknown]
  - Swelling [Unknown]
  - Haemorrhage [Unknown]
  - Disease recurrence [Unknown]
  - Skin ulcer [Unknown]
